FAERS Safety Report 8494980-5 (Version None)
Quarter: 2012Q3

REPORT INFORMATION
  Report Type: 
  Country: None (occurrence: None)
  Receive Date: 20120702
  Receipt Date: 20120702
  Transmission Date: 20120928
  Serious: Yes (Hospitalization)
  Sender: FDA-Public Use
  Company Number: None

PATIENT
  Sex: Male
  Weight: 76 kg

DRUGS (1)
  1. ERBITUX [Suspect]
     Dosage: 478 MG

REACTIONS (9)
  - SECRETION DISCHARGE [None]
  - SKIN ODOUR ABNORMAL [None]
  - LOCALISED OEDEMA [None]
  - IMPETIGO [None]
  - NECK PAIN [None]
  - REFUSAL OF TREATMENT BY PATIENT [None]
  - SCAB [None]
  - PYREXIA [None]
  - CELLULITIS [None]
